FAERS Safety Report 17493086 (Version 1)
Quarter: 2020Q1

REPORT INFORMATION
  Report Type: Report from Study
  Country: US (occurrence: US)
  Receive Date: 20200303
  Receipt Date: 20200303
  Transmission Date: 20200409
  Serious: Yes (Life-Threatening)
  Sender: FDA-Public Use
  Company Number: US-PFIZER INC-2020093779

PATIENT

DRUGS (2)
  1. VIDARABINE [Suspect]
     Active Substance: VIDARABINE
     Indication: ACUTE LYMPHOCYTIC LEUKAEMIA RECURRENT
     Dosage: 250 MG/M2, DAILY X 3 DAYS (REGIMEN 2)
  2. PENTOSTATIN. [Suspect]
     Active Substance: PENTOSTATIN
     Indication: ACUTE LYMPHOCYTIC LEUKAEMIA RECURRENT
     Dosage: 10 MG/M2, DAILY X 3 DAYS (REGIMEN 2)
     Route: 042

REACTIONS (5)
  - Metabolic acidosis [Unknown]
  - Seizure [Unknown]
  - Pulmonary oedema [Unknown]
  - Hepatic failure [Unknown]
  - Brain oedema [Unknown]
